FAERS Safety Report 9919234 (Version 2)
Quarter: 2014Q2

REPORT INFORMATION
  Report Type: Spontaneous
  Country: DE (occurrence: DE)
  Receive Date: 20140224
  Receipt Date: 20140522
  Transmission Date: 20141212
  Serious: Yes (Other)
  Sender: FDA-Public Use
  Company Number: DE-JNJFOC-20140210996

PATIENT
  Sex: Female
  Weight: 74 kg

DRUGS (3)
  1. CAELYX (DOXORUBICIN HYDROCHLORIDE) [Suspect]
     Indication: BREAST CANCER
     Route: 042
     Dates: start: 20131016, end: 20140206
  2. GRANISETRON [Concomitant]
     Indication: ANTIEMETIC SUPPORTIVE CARE
     Route: 042
     Dates: start: 20131016, end: 20140206
  3. DEXAMETHASON [Concomitant]
     Indication: ANTIEMETIC SUPPORTIVE CARE
     Route: 042
     Dates: start: 20131016, end: 20140206

REACTIONS (3)
  - Mucosal inflammation [Recovered/Resolved]
  - Skin lesion [Recovered/Resolved]
  - Aphthous stomatitis [Recovered/Resolved]
